FAERS Safety Report 5393776-0 (Version None)
Quarter: 2007Q3

REPORT INFORMATION
  Report Type: 
  Country: None (occurrence: None)
  Receive Date: 20070723
  Receipt Date: 20070720
  Transmission Date: 20080115
  Serious: Yes (Death)
  Sender: FDA-Public Use
  Company Number: DE-JNJFOC-20070704281

PATIENT

DRUGS (1)
  1. RISPERDAL [Suspect]
     Indication: DEMENTIA

REACTIONS (1)
  - ELECTROMECHANICAL DISSOCIATION [None]
